FAERS Safety Report 9473009 (Version 2)
Quarter: 2013Q3

REPORT INFORMATION
  Report Type: Spontaneous
  Country: US (occurrence: US)
  Receive Date: 20130823
  Receipt Date: 20130823
  Transmission Date: 20140515
  Serious: No
  Sender: FDA-Public Use
  Company Number: US-BRISTOL-MYERS SQUIBB COMPANY-17331489

PATIENT
  Age: 46 Year
  Sex: Female
  Weight: 52.15 kg

DRUGS (1)
  1. SPRYCEL [Suspect]
     Indication: CHRONIC MYELOID LEUKAEMIA
     Dosage: 100MG LAST WEEK
     Route: 048
     Dates: start: 201301

REACTIONS (11)
  - Weight decreased [Not Recovered/Not Resolved]
  - Splenomegaly [Recovering/Resolving]
  - Musculoskeletal pain [Unknown]
  - Asthenia [Unknown]
  - Headache [Unknown]
  - Feeling abnormal [Unknown]
  - Influenza like illness [Unknown]
  - Hyperhidrosis [Unknown]
  - Nausea [Unknown]
  - Vomiting [Unknown]
  - Drug dose omission [Unknown]
